FAERS Safety Report 7245543-0 (Version None)
Quarter: 2011Q1

REPORT INFORMATION
  Report Type: 
  Country: None (occurrence: None)
  Receive Date: 20110126
  Receipt Date: 20080613
  Transmission Date: 20110831
  Serious: Yes (Death, Other)
  Sender: FDA-Public Use
  Company Number: US-BAYER-2011-006979

PATIENT
  Sex: Male

DRUGS (1)
  1. TRASYLOL,TRASYLOL [Suspect]
     Indication: CORONARY ARTERY BYPASS
     Dosage: UNK
     Route: 042
     Dates: start: 20050620

REACTIONS (8)
  - CARDIO-RESPIRATORY ARREST [None]
  - EMBOLISM ARTERIAL [None]
  - INJURY [None]
  - PAIN [None]
  - RENAL FAILURE ACUTE [None]
  - INTESTINAL ISCHAEMIA [None]
  - RENAL INJURY [None]
  - RENAL FAILURE [None]
